FAERS Safety Report 6715822-1 (Version None)
Quarter: 2010Q2

REPORT INFORMATION
  Report Type: 
  Country: None (occurrence: None)
  Receive Date: 20100507
  Receipt Date: 20100429
  Transmission Date: 20101027
  Serious: Yes (Death)
  Sender: FDA-Public Use
  Company Number: GXKR2010GB03264

PATIENT
  Age: 42 Year
  Sex: Male

DRUGS (4)
  1. CIPROFLOXACIN [Suspect]
     Route: 065
  2. FLUCONAZOLE (NGX) [Suspect]
     Route: 065
  3. METRONIDAZOLE [Suspect]
     Route: 065
  4. PHENYTOIN [Suspect]
     Route: 065

REACTIONS (7)
  - ACUTE HEPATIC FAILURE [None]
  - ATRIAL FIBRILLATION [None]
  - COAGULOPATHY [None]
  - GASTROINTESTINAL HAEMORRHAGE [None]
  - HYPOGLYCAEMIA [None]
  - IDIOSYNCRATIC DRUG REACTION [None]
  - METABOLIC ACIDOSIS [None]
